FAERS Safety Report 10882597 (Version 1)
Quarter: 2015Q1

REPORT INFORMATION
  Report Type: Spontaneous
  Country: US (occurrence: None)
  Receive Date: 20150225
  Receipt Date: 20150225
  Transmission Date: 20150721
  Serious: Yes (Hospitalization, Disabling)
  Sender: FDA-Public Use
  Company Number: None

PATIENT
  Age: 59 Year
  Sex: Female
  Weight: 56.7 kg

DRUGS (3)
  1. PEPTO-BISMOL [Suspect]
     Active Substance: BISMUTH SUBSALICYLATE\CALCIUM CARBONATE
     Indication: COLITIS
     Dosage: STRENGTH: ?, QUANTITY: 8 PILLS/DAY TOTAL, FREQUENCY: 4 TIMES/DAY, BY MOUTH
     Route: 048
     Dates: start: 20121211, end: 20121213
  2. SYNTHROID [Concomitant]
     Active Substance: LEVOTHYROXINE SODIUM
  3. MULTRI VITAMIN [Concomitant]

REACTIONS (4)
  - Deafness [None]
  - Tinnitus [None]
  - Gait disturbance [None]
  - Vertigo [None]

NARRATIVE: CASE EVENT DATE: 20121213
